FAERS Safety Report 24778930 (Version 2)
Quarter: 2025Q1

REPORT INFORMATION
  Report Type: Spontaneous
  Country: BG (occurrence: FR)
  Receive Date: 20241226
  Receipt Date: 20250317
  Transmission Date: 20250408
  Serious: Yes (Hospitalization)
  Sender: VERTEX
  Company Number: BG-VERTEX PHARMACEUTICALS-2024-019688

PATIENT
  Age: 15 Year
  Sex: Female
  Weight: 33 kg

DRUGS (2)
  1. ELEXACAFTOR\IVACAFTOR\TEZACAFTOR [Suspect]
     Active Substance: ELEXACAFTOR\IVACAFTOR\TEZACAFTOR
     Indication: Cystic fibrosis
     Dosage: 2 TABS (75 MG IVA/50 MG TEZA/100 MG ELEXA) IN THE AM
     Route: 048
     Dates: start: 20210521, end: 20241202
  2. KALYDECO [Suspect]
     Active Substance: IVACAFTOR
     Indication: Cystic fibrosis
     Dosage: 1 TAB IN THE PM
     Route: 048
     Dates: start: 20210521, end: 20241202

REACTIONS (4)
  - Bronchiectasis [Unknown]
  - Pneumothorax [Unknown]
  - Treatment noncompliance [Unknown]
  - Respiratory failure [Recovering/Resolving]

NARRATIVE: CASE EVENT DATE: 20241203
